FAERS Safety Report 8972445 (Version 1)
Quarter: 2012Q4

REPORT INFORMATION
  Report Type: 
  Country: JP (occurrence: JP)
  Receive Date: 20121218
  Receipt Date: 20121218
  Transmission Date: 20130627
  Serious: Yes (Other)
  Sender: FDA-Public Use
  Company Number: JP-ROCHE-1168156

PATIENT
  Age: 5 Year
  Sex: Female
  Weight: 19.25 kg

DRUGS (3)
  1. PEGASYS [Suspect]
     Indication: CHRONIC HEPATITIS C
     Route: 058
     Dates: start: 20071212, end: 20081104
  2. CALONAL [Concomitant]
     Indication: HEADACHE
     Dosage: A dose
     Route: 048
     Dates: start: 20071212, end: 20071219
  3. CALONAL [Concomitant]
     Indication: HEADACHE
     Dosage: A dose
     Route: 048
     Dates: start: 20071212, end: 20071219

REACTIONS (3)
  - Failure to thrive [Recovering/Resolving]
  - Pyrexia [Recovering/Resolving]
  - Alopecia [Recovering/Resolving]
